FAERS Safety Report 23309271 (Version 6)
Quarter: 2024Q4

REPORT INFORMATION
  Report Type: Spontaneous
  Country: US (occurrence: US)
  Receive Date: 20231218
  Receipt Date: 20241231
  Transmission Date: 20250114
  Serious: Yes (Hospitalization)
  Sender: PFIZER
  Company Number: US-PFIZER INC-PV202300198778

PATIENT
  Age: 82 Year
  Sex: Female

DRUGS (1)
  1. IBRANCE [Suspect]
     Active Substance: PALBOCICLIB
     Indication: Breast cancer female
     Dosage: TAKE 1 TABLET (75 MG TOTAL) 1 TIME A DAY, ON A 3 WEEKS ON AND 1 WEEK OFF SCHEDULE
     Route: 048

REACTIONS (1)
  - Pelvic fracture [Unknown]
